FAERS Safety Report 5730653-7 (Version None)
Quarter: 2008Q2

REPORT INFORMATION
  Report Type: 
  Country: None (occurrence: None)
  Receive Date: 20080507
  Receipt Date: 20080325
  Transmission Date: 20081010
  Serious: Yes (Hospitalization)
  Sender: FDA-Public Use
  Company Number: PHEH2008US02991

PATIENT
  Age: 37 Year
  Sex: Female
  Weight: 65.759 kg

DRUGS (2)
  1. FEMARA [Suspect]
     Indication: BREAST CANCER
     Dosage: 2.5 MG, QD
     Route: 048
     Dates: start: 20080206
  2. FEMARA [Suspect]
     Dosage: 2.5 MG, QD
     Route: 048
     Dates: start: 20080318

REACTIONS (3)
  - CLOSTRIDIUM DIFFICILE COLITIS [None]
  - COLECTOMY TOTAL [None]
  - ILEOSTOMY [None]
